FAERS Safety Report 14600107 (Version 8)
Quarter: 2018Q4

REPORT INFORMATION
  Report Type: Report from Study
  Country: US (occurrence: US)
  Receive Date: 20180305
  Receipt Date: 20181224
  Transmission Date: 20190204
  Serious: Yes (Other)
  Sender: FDA-Public Use
  Company Number: PHHY2018US031391

PATIENT
  Age: 6 Year
  Sex: Female
  Weight: 28.3 kg

DRUGS (19)
  1. METHOTREXATE. [Suspect]
     Active Substance: METHOTREXATE
     Dosage: 25 MG, QD
     Route: 065
     Dates: start: 20180430
  2. KINERET [Suspect]
     Active Substance: ANAKINRA
     Indication: STILL^S DISEASE
     Dosage: 100 MG, QD
     Route: 065
     Dates: start: 20160819, end: 20161019
  3. ACTEMRA [Suspect]
     Active Substance: TOCILIZUMAB
     Indication: IMMUNOMODULATORY THERAPY
     Dosage: 220 MG, QD
     Route: 065
     Dates: start: 20180108
  4. PREDNISONE. [Suspect]
     Active Substance: PREDNISONE
     Indication: STILL^S DISEASE
     Dosage: 4 MG, QD
     Route: 065
     Dates: start: 20151207, end: 20170905
  5. NO TREATMENT RECEIVED [Suspect]
     Active Substance: UNSPECIFIED INGREDIENT
     Route: 065
  6. METHOTREXATE. [Suspect]
     Active Substance: METHOTREXATE
     Indication: IMMUNOMODULATORY THERAPY
     Dosage: 20 MG, QD
     Route: 065
     Dates: start: 20171030
  7. KINERET [Suspect]
     Active Substance: ANAKINRA
     Dosage: 150 MG, QD
     Route: 065
     Dates: start: 20161019, end: 20161201
  8. CICLOSPORIN [Suspect]
     Active Substance: CYCLOSPORINE
     Indication: STILL^S DISEASE
     Dosage: 80 MG, QD
     Route: 065
     Dates: start: 20151231, end: 20161213
  9. METHOTREXATE. [Suspect]
     Active Substance: METHOTREXATE
     Indication: STILL^S DISEASE
     Dosage: 10 MG, QD
     Route: 065
     Dates: start: 20170123, end: 20171030
  10. KINERET [Suspect]
     Active Substance: ANAKINRA
     Dosage: 200 MG, QD
     Route: 065
     Dates: start: 20161201, end: 20161215
  11. ACTEMRA [Suspect]
     Active Substance: TOCILIZUMAB
     Indication: STILL^S DISEASE
     Dosage: 280 MG, QD
     Route: 065
     Dates: start: 20170529, end: 20180108
  12. INDOMETHACIN. [Suspect]
     Active Substance: INDOMETHACIN
     Indication: STILL^S DISEASE
     Dosage: 25 MG, UNK
     Route: 065
     Dates: start: 20171221
  13. ASA [Suspect]
     Active Substance: ASPIRIN
     Indication: STILL^S DISEASE
     Dosage: 80 MG, QD
     Route: 065
     Dates: start: 20151208
  14. CELECOXIB. [Suspect]
     Active Substance: CELECOXIB
     Indication: STILL^S DISEASE
     Dosage: 100 MG, QD
     Route: 065
     Dates: start: 20160729, end: 20171221
  15. ENBREL [Suspect]
     Active Substance: ETANERCEPT
     Indication: STILL^S DISEASE
     Dosage: 25 MG, QD
     Route: 065
     Dates: start: 20161216, end: 20170505
  16. IMMUNE GLOBULIN [Suspect]
     Active Substance: HUMAN IMMUNOGLOBULIN G
     Indication: STILL^S DISEASE
     Dosage: 20 G, QD
     Route: 065
     Dates: start: 20151207, end: 20151219
  17. REMICADE [Suspect]
     Active Substance: INFLIXIMAB
     Indication: STILL^S DISEASE
     Dosage: 100 MG, QD
     Route: 065
     Dates: start: 20151212, end: 20151224
  18. TINZAPARIN [Suspect]
     Active Substance: TINZAPARIN
     Indication: STILL^S DISEASE
     Dosage: 4400 U, QD
     Route: 065
     Dates: start: 20151208, end: 20161130
  19. PREDNISONE. [Suspect]
     Active Substance: PREDNISONE
     Indication: IMMUNOMODULATORY THERAPY

REACTIONS (2)
  - Adrenal suppression [Recovering/Resolving]
  - Psoriasis [Unknown]

NARRATIVE: CASE EVENT DATE: 20170123
